FAERS Safety Report 14134407 (Version 5)
Quarter: 2020Q1

REPORT INFORMATION
  Report Type: Spontaneous
  Country: ES (occurrence: ES)
  Receive Date: 20171027
  Receipt Date: 20200204
  Transmission Date: 20200409
  Serious: Yes (Hospitalization, Other)
  Sender: FDA-Public Use
  Company Number: ES-AUROBINDO-AUR-APL-2017-42412

PATIENT
  Age: 67 Year
  Sex: Female

DRUGS (6)
  1. ADVAGRAF [Suspect]
     Active Substance: TACROLIMUS
     Indication: RENAL TRANSPLANT
     Dosage: 3.5 MILLIGRAM, ONCE A DAY
     Route: 048
     Dates: start: 201203
  2. CRESTOR [Concomitant]
     Active Substance: ROSUVASTATIN CALCIUM
     Indication: DYSLIPIDAEMIA
     Dosage: 20 MILLIGRAM, ONCE A DAY
     Route: 048
     Dates: start: 20120405
  3. PREDNISONA [Concomitant]
     Active Substance: PREDNISONE
     Indication: CONTINUOUS HAEMODIAFILTRATION
     Dosage: 5 MILLIGRAM, ONCE A DAY (|| DOSIS UNIDAD FRECUENCIA: 5 MG-MILIGRAMOS || UNIDAD DE FRECUENCIA: 1 D?A)
     Route: 048
     Dates: start: 201203
  4. CELLCEPT [Interacting]
     Active Substance: MYCOPHENOLATE MOFETIL\MYCOPHENOLATE MOFETIL HYDROCHLORIDE
     Indication: RENAL TRANSPLANT
     Dosage: 1.5 GRAM, ONCE A DAY (|| DOSIS UNIDAD FRECUENCIA: 1.5 G-GRAMOS || UNIDAD DE FRECUENCIA: 1 D?A)
     Route: 048
     Dates: start: 201203
  5. VALSARTAN/HYDROCHLOROTHIAZIDE AUROBINDO FILM-COATED TABLET 80MG EFG [Suspect]
     Active Substance: HYDROCHLOROTHIAZIDE\VALSARTAN
     Indication: ESSENTIAL HYPERTENSION
     Dosage: 80 MICROGRAM, ONCE A DAY
     Route: 048
     Dates: start: 201301, end: 20160314
  6. METFORMINA [Concomitant]
     Active Substance: METFORMIN HYDROCHLORIDE
     Indication: DIABETES MELLITUS
     Dosage: 1.7 MILLIGRAM, ONCE A DAY (|| DOSIS UNIDAD FRECUENCIA: 1.7 G-GRAMOS || UNIDAD DE FRECUENCIA: 1 D?A)
     Route: 048
     Dates: start: 20150811

REACTIONS (1)
  - Acute kidney injury [Recovered/Resolved]

NARRATIVE: CASE EVENT DATE: 20160229
